FAERS Safety Report 6829664-X (Version None)
Quarter: 2010Q3

REPORT INFORMATION
  Report Type: 
  Country: None (occurrence: None)
  Receive Date: 20100709
  Receipt Date: 20070430
  Transmission Date: 20110219
  Serious: No
  Sender: FDA-Public Use
  Company Number: US-PFIZER INC-2007016177

PATIENT
  Sex: Female
  Weight: 61.69 kg

DRUGS (8)
  1. CHANTIX [Suspect]
     Indication: SMOKING CESSATION THERAPY
     Route: 048
     Dates: start: 20070201, end: 20070201
  2. BENICAR [Concomitant]
     Indication: HYPERTENSION
  3. PREVACID [Concomitant]
     Indication: DYSPEPSIA
  4. VALIUM [Concomitant]
  5. CALCIUM CARBONATE [Concomitant]
     Indication: OSTEOPOROSIS
  6. CALCIUM CARBONATE [Concomitant]
     Indication: ARTHROPATHY
  7. TERIPARATIDE [Concomitant]
     Indication: OSTEOPOROSIS
     Route: 058
  8. TERIPARATIDE [Concomitant]
     Indication: ARTHROPATHY

REACTIONS (5)
  - ABDOMINAL DISCOMFORT [None]
  - ASTHENIA [None]
  - NAUSEA [None]
  - PALLOR [None]
  - WEIGHT INCREASED [None]
